FAERS Safety Report 16231152 (Version 2)
Quarter: 2019Q2

REPORT INFORMATION
  Report Type: Spontaneous
  Country: US (occurrence: US)
  Receive Date: 20190424
  Receipt Date: 20190501
  Transmission Date: 20190711
  Serious: No
  Sender: FDA-Public Use
  Company Number: US-SA-2019SA102843

PATIENT
  Age: 58 Year
  Sex: Male

DRUGS (1)
  1. CAMPATH [Suspect]
     Active Substance: ALEMTUZUMAB
     Indication: PROLYMPHOCYTIC LEUKAEMIA
     Dosage: 10 MG
     Route: 041

REACTIONS (2)
  - Infusion related reaction [Unknown]
  - Off label use [Unknown]
